FAERS Safety Report 24610282 (Version 6)
Quarter: 2025Q2

REPORT INFORMATION
  Report Type: Spontaneous
  Country: US (occurrence: US)
  Receive Date: 20241112
  Receipt Date: 20250617
  Transmission Date: 20250716
  Serious: No
  Sender: SANOFI AVENTIS
  Company Number: US-SA-2024SA323925

PATIENT
  Age: 77 Year
  Sex: Female

DRUGS (2)
  1. DUPIXENT [Suspect]
     Active Substance: DUPILUMAB
     Indication: Dermatitis atopic
     Dosage: 300 MG, QOW
     Route: 058
     Dates: end: 2025
  2. CORTISONE [Concomitant]
     Active Substance: CORTISONE
     Route: 065
     Dates: start: 20241104

REACTIONS (11)
  - Limb injury [Unknown]
  - Dry skin [Not Recovered/Not Resolved]
  - Hordeolum [Unknown]
  - Pustule [Unknown]
  - Pain in extremity [Unknown]
  - Skin exfoliation [Unknown]
  - Pruritus [Not Recovered/Not Resolved]
  - Injection site erythema [Recovered/Resolved]
  - Arthralgia [Unknown]
  - Blepharitis [Unknown]
  - Rash [Unknown]

NARRATIVE: CASE EVENT DATE: 20250101
